FAERS Safety Report 21088375 (Version 1)
Quarter: 2022Q3

REPORT INFORMATION
  Report Type: Spontaneous
  Country: FR (occurrence: FR)
  Receive Date: 20220715
  Receipt Date: 20220715
  Transmission Date: 20221027
  Serious: Yes (Hospitalization)
  Sender: FDA-Public Use
  Company Number: None

PATIENT
  Age: 68 Year
  Sex: Male
  Weight: 132 kg

DRUGS (9)
  1. MEROPENEM [Suspect]
     Active Substance: MEROPENEM
     Indication: Osteitis
     Dosage: 2 G, 3X/DAY
     Route: 042
     Dates: start: 20210916, end: 20211104
  2. DAPTOMYCIN [Suspect]
     Active Substance: DAPTOMYCIN
     Indication: Osteitis
     Dosage: 1 G, DAILY, (1000MG/24H ADAPTED ON 22OCT21 TO 600MG/24H
     Route: 042
     Dates: start: 20210825, end: 20211104
  3. LEVOFLOXACIN [Suspect]
     Active Substance: LEVOFLOXACIN
     Indication: Osteitis
     Dosage: 500 MG, 2X/DAY
     Route: 048
     Dates: start: 20210923, end: 20211104
  4. AMLODIPINE [Concomitant]
     Active Substance: AMLODIPINE BESYLATE
     Dosage: UNK
  5. RILMENIDINE [Concomitant]
     Active Substance: RILMENIDINE
     Dosage: UNK
  6. IRBESARTAN [Concomitant]
     Active Substance: IRBESARTAN
     Dosage: UNK
  7. ACETAMINOPHEN [Concomitant]
     Active Substance: ACETAMINOPHEN
     Dosage: UNK
  8. LOVENOX [Concomitant]
     Active Substance: ENOXAPARIN SODIUM
     Dosage: UNK
  9. POLYETHYLENE GLYCOLS [Concomitant]
     Active Substance: POLYETHYLENE GLYCOLS
     Dosage: UNK

REACTIONS (2)
  - Agranulocytosis [Recovering/Resolving]
  - Off label use [Unknown]

NARRATIVE: CASE EVENT DATE: 20210101
